FAERS Safety Report 10197913 (Version 1)
Quarter: 2014Q2

REPORT INFORMATION
  Report Type: Spontaneous
  Country: US (occurrence: None)
  Receive Date: 20140523
  Receipt Date: 20140523
  Transmission Date: 20141212
  Serious: Yes (Life-Threatening, Hospitalization, Disabling)
  Sender: FDA-Public Use
  Company Number: None

PATIENT
  Age: 57 Year
  Sex: Female
  Weight: 67.13 kg

DRUGS (20)
  1. LYRICA [Suspect]
     Indication: DRUG THERAPY
     Route: 048
     Dates: start: 201403, end: 20140423
  2. CARISOPRODOL [Concomitant]
  3. FUROSEMIDE [Concomitant]
  4. HYDROCODONE/^ACETAMINOPHEN [Concomitant]
  5. CYCLOBENZAPRINE [Concomitant]
  6. NITROSTAT [Concomitant]
  7. OLANZAPINE [Concomitant]
  8. NEXIUM [Concomitant]
  9. LISINOPRIL [Concomitant]
  10. RANITIDINE [Concomitant]
  11. LAMOTRIGINE [Concomitant]
  12. CRESTOR [Concomitant]
  13. WARFARIN [Concomitant]
  14. ATELVIA [Concomitant]
  15. SAPHRIS [Concomitant]
  16. TUDORZA [Concomitant]
  17. SYMBICORT [Concomitant]
  18. PRO AIR [Concomitant]
  19. FERR-SEQUELS [Concomitant]
  20. PROVENTIL [Suspect]

REACTIONS (5)
  - Abdominal distension [None]
  - Peripheral swelling [None]
  - Peripheral swelling [None]
  - Haemorrhage [None]
  - Weight increased [None]
